FAERS Safety Report 8761514 (Version 1)
Quarter: 2012Q4

REPORT INFORMATION
  Report Type: 
  Country: CO (occurrence: CO)
  Receive Date: 20120829
  Receipt Date: 20120829
  Transmission Date: 20130627
  Serious: Yes (Other)
  Sender: FDA-Public Use
  Company Number: CO-AMGEN-COLSP2012054316

PATIENT
  Age: 62 Year
  Sex: Female

DRUGS (6)
  1. ENBREL [Suspect]
     Indication: RHEUMATOID ARTHRITIS
     Dosage: 50 mg, weekly
     Route: 058
     Dates: start: 20071123, end: 201207
  2. ENBREL [Suspect]
     Dosage: 50 mg, weekly
     Route: 058
     Dates: start: 20120805
  3. VOLTAREN                           /00372301/ [Concomitant]
     Indication: PAIN
     Dosage: UNK
     Dates: start: 2008
  4. FOLIC ACID [Concomitant]
  5. METHOTREXATE [Concomitant]
     Dosage: UNK UNK, UNK
  6. DEFLAZACORT [Concomitant]
     Indication: RHEUMATOID ARTHRITIS
     Dosage: UNK
     Dates: start: 2008

REACTIONS (4)
  - Rheumatoid arthritis [Unknown]
  - Joint injury [Unknown]
  - Blood cholesterol increased [Unknown]
  - Influenza [Recovered/Resolved]
